FAERS Safety Report 16925139 (Version 1)
Quarter: 2019Q4

REPORT INFORMATION
  Report Type: Spontaneous
  Country: US (occurrence: US)
  Receive Date: 20191016
  Receipt Date: 20191016
  Transmission Date: 20200122
  Serious: No
  Sender: FDA-Public Use
  Company Number: None

PATIENT
  Age: 56 Year
  Sex: Male
  Weight: 134.41 kg

DRUGS (15)
  1. SANDOSTATIN [Concomitant]
     Active Substance: OCTREOTIDE ACETATE
  2. NORTRIPTYLINE HCL [Concomitant]
     Active Substance: NORTRIPTYLINE HYDROCHLORIDE
  3. PERCOCET [Concomitant]
     Active Substance: ACETAMINOPHEN\OXYCODONE HYDROCHLORIDE
  4. CARVEDIOL [Concomitant]
     Active Substance: CARVEDILOL
  5. NOVOLIN R [Concomitant]
     Active Substance: INSULIN HUMAN
  6. CAPECITABINE. [Concomitant]
     Active Substance: CAPECITABINE
  7. LANTUS [Concomitant]
     Active Substance: INSULIN GLARGINE
  8. LASIX [Concomitant]
     Active Substance: FUROSEMIDE
  9. TEMOZOLOMIDE. [Suspect]
     Active Substance: TEMOZOLOMIDE
     Indication: PANCREATIC CARCINOMA
     Route: 048
  10. FENTANYL. [Concomitant]
     Active Substance: FENTANYL
  11. LYRICA [Concomitant]
     Active Substance: PREGABALIN
  12. ZANTAC 75 [Concomitant]
     Active Substance: RANITIDINE HYDROCHLORIDE
  13. XERMELO [Concomitant]
     Active Substance: TELOTRISTAT ETHYL
  14. SULFAMETHOXAZOLE - TMP [Concomitant]
     Active Substance: SULFAMETHOXAZOLE\TRIMETHOPRIM
  15. NEXIUM 24HR [Concomitant]
     Active Substance: ESOMEPRAZOLE MAGNESIUM

REACTIONS (2)
  - Nausea [None]
  - Fatigue [None]
